FAERS Safety Report 8596988-8 (Version None)
Quarter: 2012Q3

REPORT INFORMATION
  Report Type: 
  Country: None (occurrence: None)
  Receive Date: 20120815
  Receipt Date: 20120808
  Transmission Date: 20120928
  Serious: Yes (Hospitalization)
  Sender: FDA-Public Use
  Company Number: HU-BRISTOL-MYERS SQUIBB COMPANY-16818767

PATIENT
  Age: 60 Year
  Sex: Male
  Weight: 43 kg

DRUGS (1)
  1. CETUXIMAB [Suspect]
     Indication: HEAD AND NECK CANCER
     Dosage: CETUXIMAB IV 2MG/ML INF INF 55
     Route: 042
     Dates: start: 20110526, end: 20120510

REACTIONS (1)
  - ANAEMIA [None]
